FAERS Safety Report 8064518-5 (Version None)
Quarter: 2012Q1

REPORT INFORMATION
  Report Type: 
  Country: None (occurrence: None)
  Receive Date: 20120123
  Receipt Date: 20120118
  Transmission Date: 20120608
  Serious: Yes (Death)
  Sender: FDA-Public Use
  Company Number: JP-PFIZER INC-2011256134

PATIENT
  Age: 70 Year
  Sex: Female
  Weight: 23 kg

DRUGS (13)
  1. L-ASPARTATE POTASSIUM [Concomitant]
     Indication: HYPOKALAEMIA
     Dosage: 10 MEQ, 1X/DAY
     Route: 041
     Dates: start: 20111015, end: 20111021
  2. SODIUM CHLORIDE [Concomitant]
     Indication: HYPONATRAEMIA
     Dosage: 20 ML, 1X/DAY
     Route: 041
     Dates: start: 20111015, end: 20111021
  3. PRAMIPEXOLE DIHYDROCHLORIDE [Concomitant]
     Indication: RESTLESS LEGS SYNDROME
     Dosage: 0.062 MG, 1X/DAY
     Route: 048
     Dates: end: 20111022
  4. VFEND [Suspect]
     Indication: BRONCHOPULMONARY ASPERGILLOSIS
     Dosage: 14 MG, 1X/DAY
     Route: 041
     Dates: start: 20111021, end: 20111021
  5. MINOCYCLINE [Concomitant]
     Indication: PNEUMONIA STAPHYLOCOCCAL
     Dosage: 100 MG, 2X/DAY
     Route: 041
     Dates: start: 20111015, end: 20111022
  6. ITRACONAZOLE [Concomitant]
     Indication: BRONCHOPULMONARY ASPERGILLOSIS
     Dosage: 100 MG, 2X/DAY
     Route: 048
     Dates: start: 20111021, end: 20111023
  7. PANVITAN [Concomitant]
     Indication: FOLATE DEFICIENCY
     Dosage: 0.5 G, 1X/DAY
     Route: 048
     Dates: start: 20111021, end: 20111021
  8. VFEND [Suspect]
     Dosage: 10 MG, 1X/DAY
     Route: 041
     Dates: start: 20111021, end: 20111021
  9. ZOSYN [Concomitant]
     Indication: PNEUMONIA ASPIRATION
     Dosage: 4.5 G, 3X/DAY
     Route: 041
     Dates: start: 20111016, end: 20111021
  10. MIYA BM [Concomitant]
     Indication: DIARRHOEA
     Dosage: UNK
     Route: 048
     Dates: start: 20110929, end: 20111022
  11. HAROSMIN S [Concomitant]
     Indication: PNEUMONIA STAPHYLOCOCCAL
     Dosage: 2 G, 3X/DAY
     Route: 041
     Dates: start: 20111015, end: 20111023
  12. ALINAMIN F [Concomitant]
     Indication: VITAMIN B1 DEFICIENCY
     Dosage: 50 MG, 1X/DAY
     Route: 042
     Dates: start: 20111015, end: 20111021
  13. PROMACTA [Concomitant]
     Indication: GASTRIC ULCER
     Dosage: 75 MG, 2X/DAY
     Route: 048
     Dates: start: 20110907, end: 20111022

REACTIONS (2)
  - BRONCHOPULMONARY ASPERGILLOSIS [None]
  - DYSPNOEA [None]
